FAERS Safety Report 21478237 (Version 1)
Quarter: 2022Q4

REPORT INFORMATION
  Report Type: Spontaneous
  Country: US (occurrence: US)
  Receive Date: 20221019
  Receipt Date: 20221019
  Transmission Date: 20230113
  Serious: Yes (Hospitalization, Other)
  Sender: FDA-Public Use
  Company Number: US-APOTEX-2022AP014320

PATIENT
  Age: 46 Year
  Sex: Female

DRUGS (1)
  1. FINGOLIMOD [Suspect]
     Active Substance: FINGOLIMOD
     Indication: Relapsing-remitting multiple sclerosis
     Dosage: UNK
     Route: 065
     Dates: start: 201006

REACTIONS (5)
  - Osteomyelitis fungal [Recovering/Resolving]
  - Chest wall mass [Recovering/Resolving]
  - Pathological fracture [Recovering/Resolving]
  - Chest pain [Recovered/Resolved]
  - Cryptococcosis [Recovering/Resolving]

NARRATIVE: CASE EVENT DATE: 20220101
